FAERS Safety Report 21694622 (Version 1)
Quarter: 2022Q4

REPORT INFORMATION
  Report Type: Spontaneous
  Country: LB (occurrence: LB)
  Receive Date: 20221207
  Receipt Date: 20221207
  Transmission Date: 20230113
  Serious: Yes (Other)
  Sender: FDA-Public Use
  Company Number: LB-PFIZER INC-PV202200117724

PATIENT
  Age: 84 Year
  Sex: Female

DRUGS (2)
  1. IBRANCE [Suspect]
     Active Substance: PALBOCICLIB
     Indication: Breast cancer metastatic
     Dosage: 125 MG, CYCLIC (125MG OD FOR 21 DAYS AND REST 7 DAYS )
     Route: 048
  2. APO LETROZOL [Concomitant]
     Dosage: 2.5 MG, 1X/DAY (2.5MG OD)

REACTIONS (2)
  - Immunodeficiency [Recovered/Resolved]
  - Anaemia [Recovered/Resolved]
